FAERS Safety Report 6752229-5 (Version None)
Quarter: 2010Q2

REPORT INFORMATION
  Report Type: 
  Country: None (occurrence: None)
  Receive Date: 20100602
  Receipt Date: 20100527
  Transmission Date: 20101027
  Serious: Yes (Disabling)
  Sender: FDA-Public Use
  Company Number: BR-BAYER-201015184LA

PATIENT
  Age: 45 Year
  Sex: Female

DRUGS (3)
  1. BETAFERON [Suspect]
     Indication: RELAPSING-REMITTING MULTIPLE SCLEROSIS
     Dosage: DOSE TITRATION
     Route: 058
     Dates: start: 20100501
  2. LEXAPRO [Concomitant]
     Indication: ANTIDEPRESSANT THERAPY
     Dosage: HALF A DAY
     Route: 048
     Dates: start: 20100501
  3. NEOSALDINA [Concomitant]
     Indication: HEADACHE
     Route: 048

REACTIONS (4)
  - GAIT DISTURBANCE [None]
  - HEADACHE [None]
  - MUSCULAR WEAKNESS [None]
  - NAUSEA [None]
